FAERS Safety Report 8170945-8 (Version None)
Quarter: 2012Q1

REPORT INFORMATION
  Report Type: 
  Country: None (occurrence: None)
  Receive Date: 20120228
  Receipt Date: 20120214
  Transmission Date: 20120608
  Serious: Yes (Other)
  Sender: FDA-Public Use
  Company Number: DE-UCBSA-052108

PATIENT
  Sex: Female

DRUGS (2)
  1. KEPPRA [Suspect]
     Dosage: DAILY DOSE: 750 MG
  2. KEPPRA [Suspect]
     Dosage: DAILY DOSE: 2750 MG

REACTIONS (3)
  - AGGRESSION [None]
  - BRAIN OPERATION [None]
  - PERSONALITY CHANGE [None]
